FAERS Safety Report 5212494-2 (Version None)
Quarter: 2007Q1

REPORT INFORMATION
  Report Type: 
  Country: None (occurrence: None)
  Receive Date: 20070118
  Receipt Date: 20070105
  Transmission Date: 20070707
  Serious: Yes (Hospitalization)
  Sender: FDA-Public Use
  Company Number: US-SHR-US-2006-030808

PATIENT
  Age: 39 Year
  Sex: Female
  Weight: 68.027 kg

DRUGS (2)
  1. BETASERON [Suspect]
     Indication: RELAPSING-REMITTING MULTIPLE SCLEROSIS
     Dosage: UNK, UNK
     Route: 058
     Dates: start: 20021120
  2. BETASERON [Suspect]
     Dosage: UNK, 1X/DAY
     Route: 058
     Dates: start: 20050816

REACTIONS (16)
  - ANAEMIA [None]
  - BLADDER PAIN [None]
  - DEEP VEIN THROMBOSIS [None]
  - DEPRESSION [None]
  - HYPERCOAGULATION [None]
  - MENINGITIS BACTERIAL [None]
  - MIGRAINE [None]
  - MULTIPLE SCLEROSIS [None]
  - NAUSEA [None]
  - NEUROPATHY PERIPHERAL [None]
  - OBESITY [None]
  - OEDEMA PERIPHERAL [None]
  - POLLAKIURIA [None]
  - PSEUDOMONAL SEPSIS [None]
  - TACHYARRHYTHMIA [None]
  - THROMBOSIS [None]
